FAERS Safety Report 6709727-X (Version None)
Quarter: 2010Q2

REPORT INFORMATION
  Report Type: 
  Country: None (occurrence: None)
  Receive Date: 20100504
  Receipt Date: 20100428
  Transmission Date: 20101027
  Serious: Yes (Hospitalization)
  Sender: FDA-Public Use
  Company Number: FR-ROCHE-700504

PATIENT
  Sex: Male

DRUGS (8)
  1. VALIUM [Suspect]
     Route: 048
     Dates: start: 20100305, end: 20100310
  2. TEGRETOL [Suspect]
     Route: 048
     Dates: start: 20100222, end: 20100315
  3. DEROXAT [Suspect]
     Route: 048
     Dates: start: 20100302, end: 20100316
  4. ZYPREXA [Suspect]
     Route: 048
     Dates: start: 20100216, end: 20100305
  5. IMOVANE [Suspect]
     Dosage: FORM: COATED TABLET
     Route: 048
     Dates: start: 20100226, end: 20100316
  6. RIVOTRIL [Concomitant]
     Dosage: FORMG: QUADRIDIVISIBLE TABLET, DOSAGE: 2 MG THRICE, IF REQUIRED
  7. XANAX [Concomitant]
     Dates: start: 20100221, end: 20100226
  8. LYSANXIA [Concomitant]
     Dates: start: 20100310

REACTIONS (1)
  - DRUG RASH WITH EOSINOPHILIA AND SYSTEMIC SYMPTOMS [None]
